FAERS Safety Report 7562604-7 (Version None)
Quarter: 2011Q2

REPORT INFORMATION
  Report Type: 
  Country: None (occurrence: None)
  Receive Date: 20110622
  Receipt Date: 20110615
  Transmission Date: 20111010
  Serious: Yes (Hospitalization)
  Sender: FDA-Public Use
  Company Number: GB-US-EMD SERONO, INC.-7057673

PATIENT
  Sex: Female

DRUGS (3)
  1. REBIF [Suspect]
     Dates: start: 20110426, end: 20110510
  2. REBIF [Suspect]
     Indication: RELAPSING-REMITTING MULTIPLE SCLEROSIS
     Dosage: TITRATION
     Dates: start: 20110412, end: 20110426
  3. REBIF [Suspect]
     Dates: start: 20110510

REACTIONS (4)
  - MULTIPLE SCLEROSIS RELAPSE [None]
  - ABDOMINAL DISCOMFORT [None]
  - SCOTOMA [None]
  - ABDOMINAL PAIN LOWER [None]
